FAERS Safety Report 19865413 (Version 2)
Quarter: 2022Q1

REPORT INFORMATION
  Report Type: Spontaneous
  Country: CA (occurrence: CA)
  Receive Date: 20210921
  Receipt Date: 20220214
  Transmission Date: 20220423
  Serious: Yes (Hospitalization)
  Sender: FDA-Public Use
  Company Number: CA-TAKEDA-2021TUS057143

PATIENT
  Age: 63 Year
  Sex: Male

DRUGS (8)
  1. HIZENTRA [Suspect]
     Active Substance: HUMAN IMMUNOGLOBULIN G
     Indication: Chronic inflammatory demyelinating polyradiculoneuropathy
     Dosage: UNK
     Route: 058
  2. HIZENTRA [Suspect]
     Active Substance: HUMAN IMMUNOGLOBULIN G
     Dosage: 48 GRAM, 1/WEEK
     Route: 058
  3. HIZENTRA [Suspect]
     Active Substance: HUMAN IMMUNOGLOBULIN G
     Dosage: 48 GRAM, 1/WEEK
     Route: 058
     Dates: start: 20210324
  4. HIZENTRA [Suspect]
     Active Substance: HUMAN IMMUNOGLOBULIN G
     Dosage: 48 GRAM, 1/WEEK
     Route: 058
     Dates: start: 20210324
  5. HIZENTRA [Suspect]
     Active Substance: HUMAN IMMUNOGLOBULIN G
     Dosage: 48 GRAM, 1/WEEK
     Route: 058
     Dates: start: 20210324
  6. HIZENTRA [Suspect]
     Active Substance: HUMAN IMMUNOGLOBULIN G
     Dosage: 48 GRAM, 1/WEEK
     Route: 058
     Dates: start: 20210324
  7. NITROGLYCERIN [Concomitant]
     Active Substance: NITROGLYCERIN
  8. LASIX [Concomitant]
     Active Substance: FUROSEMIDE

REACTIONS (18)
  - Myocardial infarction [Unknown]
  - Injection site bruising [Unknown]
  - Blood pressure decreased [Unknown]
  - Insomnia [Unknown]
  - Pallor [Unknown]
  - Chest pain [Unknown]
  - Dyspnoea [Unknown]
  - Joint swelling [Unknown]
  - Burning sensation [Unknown]
  - Discomfort [Unknown]
  - Dizziness [Unknown]
  - Injection site pain [Unknown]
  - Balance disorder [Unknown]
  - Nausea [Unknown]
  - Orbital swelling [Unknown]
  - Pain in extremity [Unknown]
  - Weight decreased [Unknown]
  - Weight increased [Unknown]

NARRATIVE: CASE EVENT DATE: 20210501
